FAERS Safety Report 5603826-1 (Version None)
Quarter: 2008Q1

REPORT INFORMATION
  Report Type: 
  Country: None (occurrence: None)
  Receive Date: 20080123
  Receipt Date: 20080116
  Transmission Date: 20080703
  Serious: Yes (Other)
  Sender: FDA-Public Use
  Company Number: 2008SP001425

PATIENT
  Age: 52 Year
  Sex: Male

DRUGS (2)
  1. PEG-INTRON [Suspect]
     Indication: HEPATITIS C
     Dosage: ;SC ;SC
     Route: 058
     Dates: start: 20080108
  2. RIBAVIRIN [Suspect]
     Indication: HEPATITIS C
     Dosage: ; PO ; PO
     Route: 048
     Dates: start: 20080108

REACTIONS (4)
  - ANAEMIA [None]
  - ASCITES [None]
  - INFLUENZA [None]
  - INSOMNIA [None]
